FAERS Safety Report 17028849 (Version 1)
Quarter: 2019Q4

REPORT INFORMATION
  Report Type: Spontaneous
  Country: FR (occurrence: FR)
  Receive Date: 20191114
  Receipt Date: 20191114
  Transmission Date: 20200122
  Serious: Yes (Hospitalization)
  Sender: FDA-Public Use
  Company Number: FR-BAXTER-2019BAX022306

PATIENT
  Age: 11 Year
  Sex: Female
  Weight: 61.1 kg

DRUGS (2)
  1. GLUCOSE 5% VIAFLO, SOLUTION POUR PERFUSION [Suspect]
     Active Substance: DEXTROSE
     Indication: ENCEPHALOMYELITIS
     Dosage: UNKNOWN DOSAGE
     Route: 042
     Dates: start: 20190925, end: 20190925
  2. SOLU-MEDROL [Suspect]
     Active Substance: METHYLPREDNISOLONE SODIUM SUCCINATE
     Indication: ENCEPHALOMYELITIS
     Dosage: UNKNOWN DOSAGE
     Route: 042
     Dates: start: 20190925, end: 20190925

REACTIONS (2)
  - Product preparation error [Recovered/Resolved]
  - Blood glucose increased [Recovered/Resolved]

NARRATIVE: CASE EVENT DATE: 20190925
